FAERS Safety Report 14513146 (Version 1)
Quarter: 2018Q1

REPORT INFORMATION
  Report Type: Spontaneous
  Country: US (occurrence: US)
  Receive Date: 20180209
  Receipt Date: 20180209
  Transmission Date: 20180509
  Serious: No
  Sender: FDA-Public Use
  Company Number: US-ALLERGAN-1724854US

PATIENT
  Age: 53 Year
  Sex: Female
  Weight: 71.2 kg

DRUGS (3)
  1. RESTASIS [Suspect]
     Active Substance: CYCLOSPORINE
     Indication: DRY EYE
     Dosage: 2 GTT, BID
     Route: 047
     Dates: start: 20170612
  2. ZITHROMAX [Concomitant]
     Active Substance: AZITHROMYCIN DIHYDRATE
     Indication: DENTAL CARE
     Dosage: UNK
     Route: 048
     Dates: end: 20170611
  3. IBUPROFEN. [Concomitant]
     Active Substance: IBUPROFEN
     Indication: DENTAL CARE
     Dosage: UNK
     Route: 048

REACTIONS (5)
  - Wrong technique in product usage process [Unknown]
  - Rhinorrhoea [Not Recovered/Not Resolved]
  - Throat irritation [Unknown]
  - Cough [Not Recovered/Not Resolved]
  - Dysgeusia [Not Recovered/Not Resolved]

NARRATIVE: CASE EVENT DATE: 20170612
